FAERS Safety Report 12781209 (Version 1)
Quarter: 2016Q3

REPORT INFORMATION
  Report Type: Report from Study
  Country: DE (occurrence: DE)
  Receive Date: 20160926
  Receipt Date: 20160926
  Transmission Date: 20161109
  Serious: Yes (Hospitalization)
  Sender: FDA-Public Use
  Company Number: US-ASTRAZENECA-2016SF02018

PATIENT
  Age: 4 Month
  Sex: Male
  Weight: 5.9 kg

DRUGS (1)
  1. SYNAGIS [Suspect]
     Active Substance: PALIVIZUMAB
     Indication: ANTIVIRAL PROPHYLAXIS
     Route: 030
     Dates: start: 20091007, end: 20100315

REACTIONS (2)
  - Respiratory syncytial virus test positive [Unknown]
  - Bronchiolitis [Unknown]

NARRATIVE: CASE EVENT DATE: 200912
